FAERS Safety Report 10441640 (Version 1)
Quarter: 2014Q3

REPORT INFORMATION
  Report Type: Spontaneous
  Country: US (occurrence: US)
  Receive Date: 20140908
  Receipt Date: 20140908
  Transmission Date: 20150326
  Serious: Yes (Death, Hospitalization)
  Sender: FDA-Public Use
  Company Number: US-TEVA-506694USA

PATIENT
  Age: 66 Year
  Sex: Male

DRUGS (7)
  1. SIMVASTATIN. [Concomitant]
     Active Substance: SIMVASTATIN
     Dosage: TAKING OVER 1 YEAR
     Route: 065
  2. ANTABUSE [Suspect]
     Active Substance: DISULFIRAM
     Route: 065
  3. LISINOPRIL, HYDROCHLOROTHIAZIDE [Concomitant]
     Dosage: TAKING OVER 1 YEAR
     Route: 065
  4. GLIPIZIDE. [Concomitant]
     Active Substance: GLIPIZIDE
     Indication: TYPE 2 DIABETES MELLITUS
     Dosage: TAKING OVER 1 YEAR
     Route: 065
  5. SOTALOL. [Concomitant]
     Active Substance: SOTALOL
     Dosage: TAKING OVER 1 YEAR
     Route: 065
  6. WARFARIN [Concomitant]
     Active Substance: WARFARIN
     Dosage: TAKING OVER 1 YEAR
     Route: 065
  7. METFORMIN [Concomitant]
     Active Substance: METFORMIN HYDROCHLORIDE
     Indication: TYPE 2 DIABETES MELLITUS
     Dosage: TAKING OVER 1 YEAR
     Route: 065

REACTIONS (4)
  - Hepatic encephalopathy [Not Recovered/Not Resolved]
  - Acute hepatic failure [Fatal]
  - Leukocytosis [Unknown]
  - Eosinophilia [Recovered/Resolved]
